FAERS Safety Report 6888901-6 (Version None)
Quarter: 2010Q3

REPORT INFORMATION
  Report Type: 
  Country: None (occurrence: None)
  Receive Date: 20100730
  Receipt Date: 20071120
  Transmission Date: 20110219
  Serious: Yes (Other)
  Sender: FDA-Public Use
  Company Number: US-PFIZER INC-2007080574

PATIENT
  Sex: Male
  Weight: 86.2 kg

DRUGS (3)
  1. LIPITOR [Suspect]
  2. ZOCOR [Suspect]
  3. CRESTOR [Suspect]

REACTIONS (1)
  - MYOSITIS [None]
